FAERS Safety Report 16729163 (Version 1)
Quarter: 2019Q3

REPORT INFORMATION
  Report Type: Spontaneous
  Country: US (occurrence: US)
  Receive Date: 20190822
  Receipt Date: 20190822
  Transmission Date: 20191005
  Serious: Yes (Hospitalization, Other)
  Sender: FDA-Public Use
  Company Number: US-JNJFOC-20190813548

PATIENT
  Age: 49 Year
  Sex: Male
  Weight: 79 kg

DRUGS (9)
  1. MORPHINE [Concomitant]
     Active Substance: MORPHINE
     Indication: NEUROPATHY PERIPHERAL
     Route: 065
     Dates: start: 201802, end: 201907
  2. OXYCODONE [Concomitant]
     Active Substance: OXYCODONE
     Indication: NEUROPATHY PERIPHERAL
     Route: 065
     Dates: start: 200907, end: 201907
  3. DURAGESIC [Suspect]
     Active Substance: FENTANYL
     Indication: NEUROPATHY PERIPHERAL
     Dosage: 25 MCG/ 50 MCG
     Route: 065
     Dates: start: 200408, end: 201802
  4. WARFARIN [Suspect]
     Active Substance: WARFARIN
     Indication: PRODUCT USED FOR UNKNOWN INDICATION
     Route: 065
  5. WARFARIN [Suspect]
     Active Substance: WARFARIN
     Dosage: 1 MILLIGRAM ALTERNATES 2 TO 3 DAILY
     Route: 065
  6. IMODIUM [Concomitant]
     Active Substance: LOPERAMIDE HYDROCHLORIDE
     Indication: PRODUCT USED FOR UNKNOWN INDICATION
     Route: 065
     Dates: start: 2017
  7. OPANA ER [Concomitant]
     Active Substance: OXYMORPHONE HYDROCHLORIDE
     Indication: NEUROPATHY PERIPHERAL
     Route: 065
  8. OMEPRAZOLE. [Concomitant]
     Active Substance: OMEPRAZOLE
     Indication: PRODUCT USED FOR UNKNOWN INDICATION
     Route: 065
     Dates: start: 2010
  9. GABAPENTIN. [Suspect]
     Active Substance: GABAPENTIN
     Indication: NEUROPATHY PERIPHERAL
     Route: 065
     Dates: start: 200907

REACTIONS (8)
  - Thrombosis [Not Recovered/Not Resolved]
  - Colitis microscopic [Not Recovered/Not Resolved]
  - Colitis ulcerative [Not Recovered/Not Resolved]
  - Spinal disorder [Not Recovered/Not Resolved]
  - Tinnitus [Unknown]
  - Pulmonary embolism [Not Recovered/Not Resolved]
  - Deep vein thrombosis [Not Recovered/Not Resolved]
  - Hiatus hernia [Unknown]

NARRATIVE: CASE EVENT DATE: 200907
